FAERS Safety Report 9435349 (Version 1)
Quarter: 2013Q3

REPORT INFORMATION
  Report Type: Spontaneous
  Country: FR (occurrence: FR)
  Receive Date: 20130801
  Receipt Date: 20130801
  Transmission Date: 20140515
  Serious: Yes (Other)
  Sender: FDA-Public Use
  Company Number: FR-BRISTOL-MYERS SQUIBB COMPANY-19147743

PATIENT
  Age: 72 Year
  Sex: Female

DRUGS (2)
  1. TAXOL INJ [Suspect]
     Indication: BREAST CANCER METASTATIC
     Dosage: 29NOV2011-SECOND DOSE
     Route: 042
     Dates: start: 20111108, end: 20120320
  2. AVASTIN [Suspect]
     Indication: BREAST CANCER METASTATIC
     Route: 042
     Dates: start: 20111108, end: 20120320

REACTIONS (2)
  - Hypertension [Recovered/Resolved]
  - Dysphonia [Recovered/Resolved]
